FAERS Safety Report 9338790 (Version 2)
Quarter: 2013Q3

REPORT INFORMATION
  Report Type: Spontaneous
  Country: US (occurrence: US)
  Receive Date: 20130610
  Receipt Date: 20130724
  Transmission Date: 20140515
  Serious: Yes (Other)
  Sender: FDA-Public Use
  Company Number: US-ASTELLAS-2013US005932

PATIENT
  Age: 44 Year
  Sex: Male

DRUGS (1)
  1. PROGRAF [Suspect]
     Indication: RENAL TRANSPLANT
     Dosage: 2.5 MG, BID
     Route: 065
     Dates: start: 19991118

REACTIONS (2)
  - Ureteric stenosis [Not Recovered/Not Resolved]
  - Transplant failure [Not Recovered/Not Resolved]
